FAERS Safety Report 23370018 (Version 1)
Quarter: 2024Q1

REPORT INFORMATION
  Report Type: Spontaneous
  Country: US (occurrence: None)
  Receive Date: 20240104
  Receipt Date: 20240104
  Transmission Date: 20240410
  Serious: No
  Sender: FDA-Public Use
  Company Number: None

PATIENT
  Sex: Male

DRUGS (2)
  1. OMNITROPE [Suspect]
     Active Substance: SOMATROPIN
     Indication: Short stature
     Dosage: FREQUENCY : DAILY;?
     Route: 058
     Dates: start: 202310
  2. NORDITROPIN [Concomitant]
     Active Substance: SOMATROPIN

REACTIONS (4)
  - Incorrect dose administered by device [None]
  - Wrong technique in device usage process [None]
  - Overdose [None]
  - Wrong device used [None]
